FAERS Safety Report 16766516 (Version 1)
Quarter: 2019Q4

REPORT INFORMATION
  Report Type: Spontaneous
  Country: US (occurrence: US)
  Receive Date: 20190831
  Receipt Date: 20190831
  Transmission Date: 20200122
  Serious: No
  Sender: FDA-Public Use
  Company Number: None

PATIENT
  Age: 50 Year
  Sex: Female
  Weight: 97.2 kg

DRUGS (6)
  1. VITAMIN B 2000 UNITS [Concomitant]
  2. HYDROCODONE [Suspect]
     Active Substance: HYDROCODONE
     Indication: COMPLEX REGIONAL PAIN SYNDROME
     Route: 048
  3. ALPRAZOLAM. [Suspect]
     Active Substance: ALPRAZOLAM
     Indication: ANXIETY
     Route: 048
  4. VIIBRYD [Concomitant]
     Active Substance: VILAZODONE HYDROCHLORIDE
  5. PRAMIPEXOLE 0.25MG [Concomitant]
  6. MELATONIN 5 MG [Concomitant]

REACTIONS (3)
  - Drug withdrawal syndrome [None]
  - Therapy cessation [None]
  - Patient dissatisfaction with treatment [None]
